FAERS Safety Report 4376147-5 (Version None)
Quarter: 2004Q2

REPORT INFORMATION
  Report Type: 
  Country: None (occurrence: None)
  Receive Date: 20040607
  Receipt Date: 20040525
  Transmission Date: 20050107
  Serious: Yes (Death, Hospitalization, Other)
  Sender: FDA-Public Use
  Company Number: 2004006684

PATIENT
  Age: 59 Year
  Sex: Male

DRUGS (5)
  1. ZOLOFT [Suspect]
     Indication: ILL-DEFINED DISORDER
     Dosage: 50 MG (DAILY), ORAL
     Route: 048
     Dates: start: 20040128, end: 20040101
  2. QUETIAPINE FUMARATE (QUETIAPINE FUMARATE) [Suspect]
     Indication: PSYCHOTIC DISORDER
     Dosage: 200 MG, BID, ORAL
     Route: 048
     Dates: start: 20031223
  3. TEMAZEPAM [Concomitant]
  4. RANITIDINE [Concomitant]
  5. OXAZEPAM [Concomitant]

REACTIONS (10)
  - DISSEMINATED INTRAVASCULAR COAGULATION [None]
  - ENTEROCOLITIS HAEMORRHAGIC [None]
  - GASTROINTESTINAL DISORDER [None]
  - GENERAL PHYSICAL HEALTH DETERIORATION [None]
  - HEPATIC CONGESTION [None]
  - HEPATOMEGALY [None]
  - MALAISE [None]
  - NEUROLEPTIC MALIGNANT SYNDROME [None]
  - PULMONARY OEDEMA [None]
  - SEROTONIN SYNDROME [None]
